FAERS Safety Report 5232067-5 (Version None)
Quarter: 2007Q1

REPORT INFORMATION
  Report Type: 
  Country: None (occurrence: None)
  Receive Date: 20070205
  Receipt Date: 20070123
  Transmission Date: 20070707
  Serious: Yes (Hospitalization)
  Sender: FDA-Public Use
  Company Number: B0456310A

PATIENT
  Age: 55 Year
  Sex: Female

DRUGS (4)
  1. LITHIUM CARBONATE [Suspect]
     Indication: BIPOLAR DISORDER
  2. RISPERDAL [Concomitant]
  3. THIOTHIXENE [Concomitant]
  4. BENZTROPINE MESYLATE [Concomitant]

REACTIONS (15)
  - CONFUSIONAL STATE [None]
  - COORDINATION ABNORMAL [None]
  - DRUG LEVEL ABOVE THERAPEUTIC [None]
  - DYSARTHRIA [None]
  - ENCEPHALOPATHY [None]
  - HALLUCINATION [None]
  - HYPERREFLEXIA [None]
  - INFECTION [None]
  - MUSCLE RIGIDITY [None]
  - MUTISM [None]
  - MYOCLONUS [None]
  - STATUS EPILEPTICUS [None]
  - THERAPEUTIC AGENT TOXICITY [None]
  - TREMOR [None]
  - UNRESPONSIVE TO STIMULI [None]
